FAERS Safety Report 4558473-X (Version None)
Quarter: 2005Q1

REPORT INFORMATION
  Report Type: 
  Country: None (occurrence: None)
  Receive Date: 20050121
  Receipt Date: 20041011
  Transmission Date: 20050727
  Serious: No
  Sender: FDA-Public Use
  Company Number: DE-MERCK-0410DEU00299

PATIENT
  Age: 66 Year
  Sex: Male
  Weight: 143 kg

DRUGS (14)
  1. VIOXX [Suspect]
     Indication: BACK PAIN
     Route: 048
     Dates: start: 20001202, end: 20030401
  2. VIOXX [Suspect]
     Route: 048
     Dates: start: 20030401, end: 20040101
  3. VIOXX [Suspect]
     Route: 048
     Dates: start: 20001101, end: 20001201
  4. VIOXX [Suspect]
     Indication: OSTEOCHONDROSIS
     Route: 048
     Dates: start: 20001202, end: 20030401
  5. VIOXX [Suspect]
     Route: 048
     Dates: start: 20030401, end: 20040101
  6. VIOXX [Suspect]
     Route: 048
     Dates: start: 20001101, end: 20001201
  7. CAPTOPRIL [Concomitant]
     Route: 065
  8. LEVOTHYROXINE SODIUM [Concomitant]
     Route: 065
  9. TAMSULOSIN HYDROCHLORIDE [Concomitant]
     Route: 065
  10. BENZTHIAZIDE AND TRIAMTERENE [Concomitant]
     Route: 065
  11. HARPAGOPHYTUM PROCUMBENS [Concomitant]
     Route: 065
  12. TRAMADOL HYDROCHLORIDE [Concomitant]
     Route: 065
  13. BUPRENORPHINE HYDROCHLORIDE [Concomitant]
     Route: 065
     Dates: start: 20031029, end: 20040101
  14. ESOMEPRAZOLE MAGNESIUM [Concomitant]
     Route: 065

REACTIONS (15)
  - ABDOMINAL PAIN UPPER [None]
  - ANXIETY [None]
  - ASTHENIA [None]
  - CARDIAC FAILURE [None]
  - CHEST PAIN [None]
  - CONSTIPATION [None]
  - DISTURBANCE IN ATTENTION [None]
  - HEADACHE [None]
  - HYPERTENSION [None]
  - METABOLIC DISORDER [None]
  - OEDEMA PERIPHERAL [None]
  - PALPITATIONS [None]
  - RENAL FAILURE [None]
  - VISION BLURRED [None]
  - WEIGHT INCREASED [None]
